FAERS Safety Report 13682849 (Version 5)
Quarter: 2018Q3

REPORT INFORMATION
  Report Type: Spontaneous
  Country: US (occurrence: US)
  Receive Date: 20170623
  Receipt Date: 20180706
  Transmission Date: 20181010
  Serious: Yes (Hospitalization)
  Sender: FDA-Public Use
  Company Number: US-PFIZER INC-2017265909

PATIENT
  Age: 56 Year
  Sex: Male

DRUGS (2)
  1. GENTAMICIN SULFATE. [Suspect]
     Active Substance: GENTAMICIN SULFATE
     Indication: DEAFNESS NEUROSENSORY
  2. GENTAMICIN SULFATE. [Suspect]
     Active Substance: GENTAMICIN SULFATE
     Indication: MENIERE^S DISEASE
     Dosage: 0.3 ML, AURICULAR (INTRATYMPANIC)
     Route: 001

REACTIONS (6)
  - Diplopia [Recovered/Resolved]
  - Vestibular disorder [Recovered/Resolved]
  - Product use issue [Recovered/Resolved]
  - Product use in unapproved indication [Recovered/Resolved]
  - Strabismus [Recovered/Resolved]
  - Eye movement disorder [Recovered/Resolved]
